FAERS Safety Report 6413199-2 (Version None)
Quarter: 2009Q4

REPORT INFORMATION
  Report Type: 
  Country: None (occurrence: None)
  Receive Date: 20091022
  Receipt Date: 20091022
  Transmission Date: 20100525
  Serious: Yes (Disabling)
  Sender: FDA-Public Use
  Company Number: None

PATIENT
  Sex: Female
  Weight: 96.1626 kg

DRUGS (2)
  1. SIMCOR [Suspect]
     Indication: BLOOD CHOLESTEROL INCREASED
     Dosage: 500-20MG 1 TAB @ BEDTIME
     Dates: start: 20090917, end: 20090925
  2. TRILIPIX [Suspect]
     Indication: BLOOD CHOLESTEROL INCREASED
     Dosage: 135 MG 1 TAB @ BEDTIME
     Dates: start: 20090928, end: 20091005

REACTIONS (3)
  - ARTHRALGIA [None]
  - MYALGIA [None]
  - NAUSEA [None]
